FAERS Safety Report 8351842-1 (Version None)
Quarter: 2012Q2

REPORT INFORMATION
  Report Type: 
  Country: None (occurrence: None)
  Receive Date: 20120511
  Receipt Date: 20070410
  Transmission Date: 20120825
  Serious: No
  Sender: FDA-Public Use
  Company Number: 2007BI008058

PATIENT
  Age: 30 Year
  Sex: Female

DRUGS (1)
  1. TYSABRI [Suspect]
     Indication: MULTIPLE SCLEROSIS
     Route: 042
     Dates: start: 20070207

REACTIONS (3)
  - SENSATION OF HEAVINESS [None]
  - FATIGUE [None]
  - PHARYNGEAL OEDEMA [None]
